FAERS Safety Report 9492052 (Version 1)
Quarter: 2013Q3

REPORT INFORMATION
  Report Type: Spontaneous
  Country: US (occurrence: US)
  Receive Date: 20130830
  Receipt Date: 20130830
  Transmission Date: 20140515
  Serious: Yes (Other)
  Sender: FDA-Public Use
  Company Number: US-ABBOTT-13P-163-1138223-00

PATIENT
  Sex: Male
  Weight: 3.93 kg

DRUGS (1)
  1. LEVOTHYROXINE [Suspect]
     Indication: MATERNAL EXPOSURE TIMING UNSPECIFIED
     Route: 064

REACTIONS (3)
  - Hypopituitarism [Recovered/Resolved]
  - Hypothyroidism [Recovered/Resolved]
  - Foetal exposure during pregnancy [Unknown]
